FAERS Safety Report 7625179-X (Version None)
Quarter: 2011Q3

REPORT INFORMATION
  Report Type: 
  Country: None (occurrence: None)
  Receive Date: 20110721
  Receipt Date: 20101116
  Transmission Date: 20111222
  Serious: No
  Sender: FDA-Public Use
  Company Number: US-BAYER-2011-001591

PATIENT
  Sex: Male

DRUGS (2)
  1. IBUPROFEN [Concomitant]
     Dosage: TAB 600 MG
  2. BETASERON [Suspect]
     Dosage: 0.25 MCG/24HR, QOD
     Route: 058

REACTIONS (1)
  - INJECTION SITE INFECTION [None]
